FAERS Safety Report 15974431 (Version 2)
Quarter: 2019Q1

REPORT INFORMATION
  Report Type: Spontaneous
  Country: BR (occurrence: BR)
  Receive Date: 20190218
  Receipt Date: 20190301
  Transmission Date: 20190418
  Serious: Yes (Other)
  Sender: FDA-Public Use
  Company Number: BR-SA-2019SA040193

PATIENT
  Age: 55 Year
  Sex: Male
  Weight: 78 kg

DRUGS (9)
  1. APIDRA [Suspect]
     Active Substance: INSULIN GLULISINE
     Indication: DIABETES MELLITUS
     Dosage: 8IU IN THE MORNING; 8IU AT LUNCH AND 10IU AT DINNER
     Route: 058
     Dates: start: 2014
  2. LOSARTAN. [Concomitant]
     Active Substance: LOSARTAN
     Indication: BLOOD PRESSURE MANAGEMENT
     Dosage: 2 DF, UNK
     Route: 048
     Dates: start: 2011
  3. LOSARTAN. [Concomitant]
     Active Substance: LOSARTAN
     Indication: NEPHROPROTECTIVE THERAPY
  4. FORXIGA [Concomitant]
     Active Substance: DAPAGLIFLOZIN
     Indication: NEPHROPROTECTIVE THERAPY
  5. LANTUS [Concomitant]
     Active Substance: INSULIN GLARGINE
     Indication: DIABETES MELLITUS
     Dosage: 14IU IN THE MORNING AND 14IU AT NIGHT
     Route: 058
     Dates: start: 2009
  6. SELOZOK [Concomitant]
     Active Substance: METOPROLOL SUCCINATE
     Indication: CARDIAC VALVE DISEASE
     Dosage: 1 DF, HS
     Route: 048
     Dates: start: 2017
  7. SIMVASTATIN. [Concomitant]
     Active Substance: SIMVASTATIN
     Indication: BLOOD CHOLESTEROL
     Dosage: 1 DF, UNK
     Route: 048
     Dates: start: 201808
  8. FORXIGA [Concomitant]
     Active Substance: DAPAGLIFLOZIN
     Indication: DIABETES MELLITUS
     Dosage: 1 (UNIT NOT PROVIDED) DAILY
     Route: 048
     Dates: start: 2014
  9. SOMALGIN CARDIO [Concomitant]
     Active Substance: ASPIRIN\DIHYDROXYALUMINUM AMINOACETATE ANHYDROUS\MAGNESIUM CARBONATE
     Indication: ANTICOAGULANT THERAPY
     Dosage: 1 DF
     Route: 048
     Dates: start: 201810

REACTIONS (7)
  - Pyrexia [Unknown]
  - Cardiac operation [Unknown]
  - Gingival pain [Unknown]
  - Rheumatic disorder [Unknown]
  - Blood glucose decreased [Unknown]
  - Renal disorder [Unknown]
  - Gingival disorder [Unknown]

NARRATIVE: CASE EVENT DATE: 2017
